FAERS Safety Report 7156990-X (Version None)
Quarter: 2010Q4

REPORT INFORMATION
  Report Type: 
  Country: None (occurrence: None)
  Receive Date: 20101214
  Receipt Date: 20100113
  Transmission Date: 20110411
  Serious: No
  Sender: FDA-Public Use
  Company Number: US-ASTRAZENECA-2010SE01588

PATIENT
  Sex: Male

DRUGS (3)
  1. CRESTOR [Suspect]
     Indication: BLOOD CHOLESTEROL INCREASED
     Route: 048
     Dates: start: 20091101, end: 20091101
  2. CRESTOR [Suspect]
     Route: 048
     Dates: start: 20091101
  3. LUPRON [Concomitant]
     Indication: PROSTATE CANCER
     Dates: end: 20090601

REACTIONS (4)
  - COUGH [None]
  - HYPOTONIA [None]
  - INCONTINENCE [None]
  - MYALGIA [None]
